FAERS Safety Report 24655295 (Version 2)
Quarter: 2025Q3

REPORT INFORMATION
  Report Type: Report from Study
  Country: US (occurrence: US)
  Receive Date: 20241123
  Receipt Date: 20250803
  Transmission Date: 20251021
  Serious: Yes (Other)
  Sender: ALEXION PHARMACEUTICALS
  Company Number: US-AstraZeneca-CH-00749320A

PATIENT
  Sex: Male

DRUGS (1)
  1. DAPAGLIFLOZIN [Suspect]
     Active Substance: DAPAGLIFLOZIN

REACTIONS (7)
  - Drug hypersensitivity [Unknown]
  - Loss of consciousness [Unknown]
  - Urine abnormality [Unknown]
  - Dysuria [Unknown]
  - Intentional product misuse [Unknown]
  - Weight decreased [Unknown]
  - Asthenia [Unknown]
